FAERS Safety Report 8729928 (Version 2)
Quarter: 2012Q4

REPORT INFORMATION
  Report Type: 
  Country: CH (occurrence: CH)
  Receive Date: 20120817
  Receipt Date: 20120904
  Transmission Date: 20130627
  Serious: Yes (Hospitalization)
  Sender: FDA-Public Use
  Company Number: CH-GLAXOSMITHKLINE-B0823533A

PATIENT
  Age: 75 Year
  Sex: Female
  Weight: 67 kg

DRUGS (5)
  1. REVOLADE [Suspect]
     Indication: IDIOPATHIC THROMBOCYTOPENIC PURPURA
     Dosage: 75MG per day
     Route: 048
     Dates: start: 20120720, end: 20120806
  2. NPLATE [Suspect]
     Indication: IDIOPATHIC THROMBOCYTOPENIC PURPURA
     Route: 065
  3. EUTHYROX [Concomitant]
     Indication: HYPOTHYROIDISM
     Dosage: .1MG per day
     Route: 048
  4. TAMOXIFEN [Concomitant]
     Indication: BREAST CANCER
     Dosage: 10MG per day
     Route: 048
     Dates: start: 201105, end: 20120806
  5. DEANXIT [Concomitant]
     Route: 048

REACTIONS (1)
  - Cerebrovascular accident [Recovering/Resolving]
